FAERS Safety Report 14228105 (Version 2)
Quarter: 2018Q1

REPORT INFORMATION
  Report Type: Spontaneous
  Country: FR (occurrence: FR)
  Receive Date: 20171127
  Receipt Date: 20180221
  Transmission Date: 20180508
  Serious: Yes (Hospitalization, Congenital Anomaly)
  Sender: FDA-Public Use
  Company Number: FR-ALLERGAN-1767805US

PATIENT
  Age: 9 Month
  Sex: Female

DRUGS (6)
  1. ESCITALOPRAM OXALATE - BP [Suspect]
     Active Substance: ESCITALOPRAM OXALATE
     Indication: PATERNAL EXPOSURE TIMING UNSPECIFIED
     Dosage: 10 MG, QD
     Route: 064
  2. ESCITALOPRAM OXALATE - BP [Suspect]
     Active Substance: ESCITALOPRAM OXALATE
     Indication: ADJUSTMENT DISORDER WITH DEPRESSED MOOD
  3. XANAX [Suspect]
     Active Substance: ALPRAZOLAM
     Indication: DEPRESSION
     Route: 064
  4. DONORMYL (DOXYLAMINE SUCCINATE) [Suspect]
     Active Substance: DOXYLAMINE SUCCINATE
     Indication: DEPRESSION
     Route: 064
  5. STILNOX [Suspect]
     Active Substance: ZOLPIDEM TARTRATE
     Indication: DEPRESSION
     Route: 064
  6. SERESTA [Suspect]
     Active Substance: OXAZEPAM
     Indication: DEPRESSION
     Route: 064

REACTIONS (5)
  - Maternal drugs affecting foetus [None]
  - Atrial septal defect [Not Recovered/Not Resolved]
  - Foetal exposure during pregnancy [Unknown]
  - Neonatal behavioural syndrome [Recovered/Resolved]
  - Neurodevelopmental disorder [Not Recovered/Not Resolved]

NARRATIVE: CASE EVENT DATE: 201612
